FAERS Safety Report 5322011-4 (Version None)
Quarter: 2007Q2

REPORT INFORMATION
  Report Type: 
  Country: None (occurrence: None)
  Receive Date: 20070511
  Receipt Date: 20070503
  Transmission Date: 20071010
  Serious: Yes (Death)
  Sender: FDA-Public Use
  Company Number: US-KINGPHARMUSA00001-K200700552

PATIENT

DRUGS (3)
  1. ALTACE [Suspect]
  2. COPAXONE /01410902/ [Concomitant]
     Indication: MULTIPLE SCLEROSIS RELAPSE
     Dosage: 20 MG, UNK
     Route: 058
     Dates: start: 20030827, end: 20070407
  3. INSULIN [Concomitant]
     Indication: DIABETES MELLITUS

REACTIONS (1)
  - DEATH [None]
